FAERS Safety Report 11761700 (Version 1)
Quarter: 2015Q4

REPORT INFORMATION
  Report Type: Report from Study
  Country: IT (occurrence: IT)
  Receive Date: 20151120
  Receipt Date: 20151120
  Transmission Date: 20160304
  Serious: Yes (Death, Hospitalization)
  Sender: FDA-Public Use
  Company Number: IT-TEVA-520541ISR

PATIENT
  Age: 79 Year
  Sex: Male
  Weight: 74 kg

DRUGS (26)
  1. LEVOXACIN [Concomitant]
     Active Substance: LEVOFLOXACIN
     Indication: INFECTION PROPHYLAXIS
     Dosage: 500 MILLIGRAM DAILY;
     Route: 042
     Dates: start: 20141024, end: 20141026
  2. SOLDESAM [Concomitant]
     Active Substance: DEXAMETHASONE
     Dosage: 20 MILLIGRAM DAILY;
     Route: 042
     Dates: start: 20141031, end: 20141031
  3. TRIMETON [Concomitant]
     Active Substance: CHLORPHENIRAMINE MALEATE
     Indication: PROPHYLACTIC CHEMOTHERAPY
     Dosage: 10 MILLIGRAM DAILY;
     Route: 030
     Dates: start: 20141031, end: 20141031
  4. DELTACORTENE [Concomitant]
     Active Substance: PREDNISONE
     Indication: DYSPNOEA
     Dosage: 50 MILLIGRAM DAILY;
     Route: 048
     Dates: start: 20141103, end: 20141105
  5. CUSTIRSEN [Suspect]
     Active Substance: CUSTIRSEN
     Indication: NON-SMALL CELL LUNG CANCER
     Dosage: 91.4286 MILLIGRAM DAILY; 640 MG DAY 1,8 AND 15 OF A 21 CYCLE
     Route: 042
     Dates: start: 20141022, end: 20141031
  6. PERFALGAN [Concomitant]
     Active Substance: ACETAMINOPHEN
     Indication: PYREXIA
     Dosage: 1000 MILLIGRAM DAILY;
     Route: 042
     Dates: start: 20141031, end: 20141031
  7. ZOLPIDEM [Concomitant]
     Active Substance: ZOLPIDEM\ZOLPIDEM TARTRATE
     Indication: ANXIETY
     Dosage: 10 MILLIGRAM DAILY;
     Route: 048
     Dates: start: 2013
  8. SOLDESAM [Concomitant]
     Active Substance: DEXAMETHASONE
     Indication: PROPHYLACTIC CHEMOTHERAPY
     Dosage: 16 MILLIGRAM DAILY;
     Route: 030
     Dates: start: 20141030, end: 20141101
  9. SIDERAL FORTE [Concomitant]
     Indication: ANAEMIA
     Dosage: 1 DOSAGE FORMS DAILY;
     Route: 048
     Dates: start: 2014
  10. FLUOXETINE [Concomitant]
     Active Substance: FLUOXETINE HYDROCHLORIDE
     Indication: ANXIETY
     Dosage: 20 MILLIGRAM DAILY;
     Route: 048
     Dates: start: 2013
  11. PANTORC [Concomitant]
     Active Substance: PANTOPRAZOLE SODIUM
     Indication: PROPHYLAXIS
     Dosage: 40 MILLIGRAM DAILY;
     Route: 042
     Dates: start: 20141103, end: 20151105
  12. FRAXIPARINA [Concomitant]
     Active Substance: NADROPARIN CALCIUM
     Indication: THROMBOSIS PROPHYLAXIS
     Dosage: .6 MILLIGRAM DAILY;
     Route: 058
     Dates: start: 20141024, end: 20141102
  13. ANTRA [Concomitant]
     Active Substance: OMEPRAZOLE
     Indication: PROPHYLAXIS
     Dosage: 40 MILLIGRAM DAILY;
     Route: 042
     Dates: start: 20141014
  14. EUTIROX [Concomitant]
     Active Substance: LEVOTHYROXINE SODIUM
     Indication: AUTOIMMUNE THYROIDITIS
     Dosage: 25 MICROGRAM DAILY;
     Route: 048
     Dates: start: 2000
  15. EUTIROX [Concomitant]
     Active Substance: LEVOTHYROXINE SODIUM
     Indication: HYPOTHYROIDISM
  16. SOLDESAM [Concomitant]
     Active Substance: DEXAMETHASONE
     Indication: DYSPNOEA
     Dosage: 8 MILLIGRAM DAILY;
     Route: 042
     Dates: start: 20141014, end: 20141027
  17. CERNEVIT [Concomitant]
     Active Substance: VITAMINS
     Indication: ASTHENIA
     Dosage: 1 VIAL
     Route: 042
     Dates: start: 20141014, end: 20141017
  18. AUGMENTIN [Concomitant]
     Active Substance: AMOXICILLIN\CLAVULANATE POTASSIUM
     Indication: INFECTION PROPHYLAXIS
     Dosage: 2 DOSAGE FORMS DAILY;
     Route: 048
     Dates: start: 20141024, end: 20141029
  19. PERFALGAN [Concomitant]
     Active Substance: ACETAMINOPHEN
     Indication: PROPHYLACTIC CHEMOTHERAPY
     Dosage: 10 MILLIGRAM DAILY;
     Route: 042
     Dates: start: 20141103, end: 20141103
  20. RANITIDINE [Concomitant]
     Active Substance: RANITIDINE\RANITIDINE HYDROCHLORIDE
     Indication: PROPHYLACTIC CHEMOTHERAPY
     Dosage: 100 MILLIGRAM DAILY;
     Route: 042
     Dates: start: 20141031, end: 20141031
  21. PARACETAMOL [Concomitant]
     Active Substance: ACETAMINOPHEN
     Indication: PROPHYLACTIC CHEMOTHERAPY
     Dosage: 2000 MILLIGRAM DAILY;
     Route: 048
     Dates: start: 20141031, end: 20141031
  22. CLEXANE [Concomitant]
     Active Substance: ENOXAPARIN SODIUM
     Indication: THROMBOSIS PROPHYLAXIS
     Dosage: 6000 IU (INTERNATIONAL UNIT) DAILY;
     Route: 058
     Dates: start: 20141103, end: 20141106
  23. DOCETAXEL. [Suspect]
     Active Substance: DOCETAXEL
     Indication: NON-SMALL CELL LUNG CANCER
     Dosage: DAY 1 OF A 21 DAY CYCLE
     Route: 042
     Dates: start: 20141031, end: 20141031
  24. TACHIDOL [Concomitant]
     Active Substance: ACETAMINOPHEN\CODEINE PHOSPHATE
     Indication: PAIN
     Dosage: 215 MILLIGRAM DAILY;
     Route: 048
     Dates: start: 20141016
  25. ALOXI [Concomitant]
     Active Substance: PALONOSETRON HYDROCHLORIDE
     Indication: PROPHYLACTIC CHEMOTHERAPY
     Dosage: 250 MICROGRAM DAILY;
     Route: 042
     Dates: start: 20141031, end: 20141031
  26. FILGRASTIM [Concomitant]
     Active Substance: FILGRASTIM
     Indication: THROMBOCYTOPENIA
     Dosage: 300 MICROGRAM DAILY;
     Route: 058
     Dates: start: 20141103, end: 20141107

REACTIONS (2)
  - Septic shock [Fatal]
  - Multi-organ failure [Fatal]

NARRATIVE: CASE EVENT DATE: 20141103
